FAERS Safety Report 5530306-4 (Version None)
Quarter: 2007Q4

REPORT INFORMATION
  Report Type: 
  Country: None (occurrence: None)
  Receive Date: 20071127
  Receipt Date: 20071127
  Transmission Date: 20080405
  Serious: Yes (Other)
  Sender: FDA-Public Use
  Company Number: None

PATIENT
  Age: 52 Year
  Sex: Female
  Weight: 56.246 kg

DRUGS (2)
  1. BONIVA [Suspect]
     Indication: OSTEOPENIA
     Dosage: ONE TABLET MONTHLY PO
     Route: 048
     Dates: start: 20071015, end: 20071114
  2. BONIVA [Suspect]
     Indication: OSTEOPENIA
     Dosage: ONE TABLET MONTHLY PO
     Route: 048
     Dates: start: 20071115

REACTIONS (11)
  - CHEST DISCOMFORT [None]
  - CONSTIPATION [None]
  - DYSPEPSIA [None]
  - FATIGUE [None]
  - FEELING ABNORMAL [None]
  - INFLUENZA LIKE ILLNESS [None]
  - OESOPHAGEAL ULCER [None]
  - PAIN IN EXTREMITY [None]
  - PELVIC PAIN [None]
  - SENSATION OF FOREIGN BODY [None]
  - SENSITIVITY OF TEETH [None]
